FAERS Safety Report 25368877 (Version 1)
Quarter: 2025Q2

REPORT INFORMATION
  Report Type: Spontaneous
  Country: IL (occurrence: IL)
  Receive Date: 20250528
  Receipt Date: 20250528
  Transmission Date: 20250716
  Serious: Yes (Other)
  Sender: TEVA
  Company Number: IL-TEVA-VS-3332819

PATIENT
  Age: 35 Year
  Sex: Female

DRUGS (1)
  1. AJOVY [Suspect]
     Active Substance: FREMANEZUMAB-VFRM
     Indication: Migraine
     Route: 065
     Dates: start: 20250513

REACTIONS (3)
  - Dyspnoea [Unknown]
  - Influenza [Unknown]
  - Chest pain [Unknown]

NARRATIVE: CASE EVENT DATE: 20250501
